FAERS Safety Report 18068300 (Version 1)
Quarter: 2020Q3

REPORT INFORMATION
  Report Type: Spontaneous
  Country: NL (occurrence: NL)
  Receive Date: 20200725
  Receipt Date: 20200725
  Transmission Date: 20201103
  Serious: Yes (Congenital Anomaly)
  Sender: FDA-Public Use
  Company Number: NL-MICRO LABS LIMITED-ML2020-02192

PATIENT

DRUGS (6)
  1. PANTOPRAZOLE [Suspect]
     Active Substance: PANTOPRAZOLE
  2. CLOZAPINE. [Suspect]
     Active Substance: CLOZAPINE
  3. SIMVASTATIN. [Suspect]
     Active Substance: SIMVASTATIN
  4. QUETIAPINE. [Suspect]
     Active Substance: QUETIAPINE
  5. ZIPRASIDONE. [Suspect]
     Active Substance: ZIPRASIDONE
  6. OPIPRAMOL [Suspect]
     Active Substance: OPIPRAMOL

REACTIONS (2)
  - Abnormal palmar/plantar creases [Unknown]
  - Foetal exposure during pregnancy [Unknown]
